FAERS Safety Report 6734719-4 (Version None)
Quarter: 2010Q2

REPORT INFORMATION
  Report Type: 
  Country: None (occurrence: None)
  Receive Date: 20100519
  Receipt Date: 20100519
  Transmission Date: 20101027
  Serious: Yes (Hospitalization)
  Sender: FDA-Public Use
  Company Number: None

PATIENT
  Age: 80 Year
  Sex: Male
  Weight: 75 kg

DRUGS (1)
  1. INFED [Suspect]
     Indication: ANAEMIA
     Dosage: 25MG ONCE IV
     Route: 042
     Dates: start: 20100517, end: 20100517

REACTIONS (5)
  - BACK PAIN [None]
  - CHEST PAIN [None]
  - CHILLS [None]
  - ERYTHEMA [None]
  - SKIN DISCOLOURATION [None]
